FAERS Safety Report 12191643 (Version 2)
Quarter: 2016Q1

REPORT INFORMATION
  Report Type: Spontaneous
  Country: US (occurrence: US)
  Receive Date: 20160318
  Receipt Date: 20160324
  Transmission Date: 20160526
  Serious: Yes (Other)
  Sender: FDA-Public Use
  Company Number: US-JNJFOC-20160312411

PATIENT
  Age: 49 Year
  Sex: Female
  Weight: 53.98 kg

DRUGS (1)
  1. SIMPONI [Suspect]
     Active Substance: GOLIMUMAB
     Indication: CROHN^S DISEASE
     Route: 058
     Dates: start: 201512

REACTIONS (10)
  - Crohn^s disease [Recovered/Resolved]
  - Drug dose omission [Unknown]
  - Product use issue [Unknown]
  - Off label use [Unknown]
  - Accidental exposure to product [Unknown]
  - Genital lesion [Recovered/Resolved]
  - Haemorrhoids [Recovered/Resolved]
  - Bronchitis [Recovered/Resolved]
  - Device malfunction [Unknown]
  - Influenza like illness [Recovered/Resolved]

NARRATIVE: CASE EVENT DATE: 201512
